FAERS Safety Report 9421316 (Version 2)
Quarter: 2013Q3

REPORT INFORMATION
  Report Type: Spontaneous
  Country: US (occurrence: US)
  Receive Date: 20130718
  Receipt Date: 20130731
  Transmission Date: 20140515
  Serious: Yes (Hospitalization)
  Sender: FDA-Public Use
  Company Number: 2013PROUSA02967

PATIENT
  Age: 75 Year
  Sex: Male
  Weight: 65.3 kg

DRUGS (1)
  1. PROVENGE [Suspect]
     Indication: PROSTATE CANCER METASTATIC
     Route: 042
     Dates: start: 20130614, end: 20130614

REACTIONS (2)
  - Blood glucose increased [None]
  - Diabetes mellitus inadequate control [None]
